FAERS Safety Report 5090866-7 (Version None)
Quarter: 2006Q3

REPORT INFORMATION
  Report Type: 
  Country: None (occurrence: None)
  Receive Date: 20060823
  Receipt Date: 20060809
  Transmission Date: 20061208
  Serious: Yes (Hospitalization, Other)
  Sender: FDA-Public Use
  Company Number: 8017469

PATIENT
  Age: 34 Month
  Sex: Female

DRUGS (1)
  1. THEOPHYLLINE [Suspect]

REACTIONS (10)
  - BRAIN OEDEMA [None]
  - CARDIOVASCULAR DISORDER [None]
  - CEREBRAL ATROPHY [None]
  - CLONIC CONVULSION [None]
  - DEPRESSED LEVEL OF CONSCIOUSNESS [None]
  - HYPOPNOEA [None]
  - INFLUENZA [None]
  - MONOPARESIS [None]
  - PYREXIA [None]
  - RESPIRATORY FAILURE [None]
